FAERS Safety Report 23522233 (Version 1)
Quarter: 2024Q1

REPORT INFORMATION
  Report Type: Spontaneous
  Country: BE (occurrence: BE)
  Receive Date: 20240214
  Receipt Date: 20240214
  Transmission Date: 20240410
  Serious: Yes (Life-Threatening, Hospitalization, Other)
  Sender: FDA-Public Use
  Company Number: BE-MLMSERVICE-20240205-4817934-1

PATIENT
  Age: 56 Year
  Sex: Male

DRUGS (1)
  1. ACETAMINOPHEN [Suspect]
     Active Substance: ACETAMINOPHEN
     Indication: Musculoskeletal chest pain
     Dosage: FOR 2 WEEKS, AT THE UPPER LIMIT OF THE MAXIMUM RECOMMENDED DOSAGE.
     Route: 065

REACTIONS (18)
  - Metabolic acidosis [Unknown]
  - Mydriasis [Unknown]
  - Toxicity to various agents [Unknown]
  - Multiple organ dysfunction syndrome [Unknown]
  - Distributive shock [Unknown]
  - Lung infiltration [Unknown]
  - Bradycardia [Unknown]
  - Hyperlactacidaemia [Unknown]
  - Respiratory failure [Unknown]
  - Hepatic encephalopathy [Unknown]
  - Pupillary reflex impaired [Unknown]
  - Acute kidney injury [Unknown]
  - Shock [Unknown]
  - Cardiac arrest [Unknown]
  - Acute hepatic failure [Unknown]
  - Gastric haemorrhage [Unknown]
  - Status epilepticus [Unknown]
  - Hepatitis acute [Unknown]
